FAERS Safety Report 9366102 (Version 2)
Quarter: 2013Q3

REPORT INFORMATION
  Report Type: Spontaneous
  Country: IT (occurrence: None)
  Receive Date: 20130619
  Receipt Date: 20130723
  Transmission Date: 20140515
  Serious: Yes (Other)
  Sender: FDA-Public Use
  Company Number: VAL_02595_2013

PATIENT
  Age: 73 Year
  Sex: Male

DRUGS (1)
  1. BENAZEPRIL [Suspect]
     Indication: HYPERTENSION
     Dosage: UNTIL NOT CONTINUING?

REACTIONS (3)
  - Skin lesion [None]
  - Eczema [None]
  - Rash [None]
